FAERS Safety Report 4401033-1 (Version None)
Quarter: 2004Q3

REPORT INFORMATION
  Report Type: 
  Country: None (occurrence: None)
  Receive Date: 20040907
  Receipt Date: 20030929
  Transmission Date: 20050211
  Serious: No
  Sender: FDA-Public Use
  Company Number: US-BRISTOL-MYERS SQUIBB COMPANY-12396594

PATIENT
  Age: 75 Year
  Sex: Female
  Weight: 62 kg

DRUGS (13)
  1. COUMADIN [Suspect]
     Indication: CARDIAC ASSISTANCE DEVICE USER
     Route: 048
  2. WARFARIN SODIUM [Suspect]
     Route: 048
  3. AMBIEN [Concomitant]
  4. MIRAPEX [Concomitant]
  5. REMERON [Concomitant]
  6. CLONAZEPAM [Concomitant]
  7. TOPROL-XL [Concomitant]
  8. CALCIUM + VITAMIN D [Concomitant]
  9. MULTIVITAMIN [Concomitant]
  10. WELCHOL [Concomitant]
  11. NEXIUM [Concomitant]
  12. ALLEGRA [Concomitant]
  13. NEURONTIN [Concomitant]
     Dosage: DISCONTINUED 3 MONTHS AGO.

REACTIONS (1)
  - INTERNATIONAL NORMALISED RATIO ABNORMAL [None]
